FAERS Safety Report 5868685-0 (Version None)
Quarter: 2008Q3

REPORT INFORMATION
  Report Type: 
  Country: None (occurrence: None)
  Receive Date: 20080903
  Receipt Date: 20080825
  Transmission Date: 20090109
  Serious: Yes (Other)
  Sender: FDA-Public Use
  Company Number: PHNU2007DE04224

PATIENT
  Sex: Male
  Weight: 76 kg

DRUGS (5)
  1. EXFORGE [Suspect]
     Indication: ESSENTIAL HYPERTENSION
     Dosage: UNK, UNK
     Dates: start: 20070330, end: 20070331
  2. BISOPROLOL FUMARATE [Concomitant]
     Dosage: 1 DF, QD
  3. METOPROLOL SUCCINATE [Concomitant]
     Indication: CORONARY ARTERY DISEASE
     Dosage: 0.5 DF, BID
  4. TOREM [Concomitant]
     Indication: CARDIAC FAILURE
     Dosage: 1 DF, QD
  5. SIMVASTATIN [Concomitant]
     Indication: CORONARY ARTERY DISEASE
     Dosage: 1 DF, QD

REACTIONS (3)
  - ACUTE CORONARY SYNDROME [None]
  - CARDIAC FAILURE [None]
  - HYPOTENSION [None]
